FAERS Safety Report 22521665 (Version 2)
Quarter: 2023Q2

REPORT INFORMATION
  Report Type: Spontaneous
  Country: CN (occurrence: CN)
  Receive Date: 20230605
  Receipt Date: 20230612
  Transmission Date: 20230721
  Serious: Yes (Life-Threatening, Hospitalization, Other)
  Sender: FDA-Public Use
  Company Number: CN-009507513-2305CHN009623

PATIENT
  Age: 63 Year
  Sex: Female

DRUGS (5)
  1. INVANZ [Suspect]
     Active Substance: ERTAPENEM SODIUM
     Indication: Anti-infective therapy
     Dosage: 1 GRAM, QD
     Route: 041
     Dates: start: 20230510, end: 20230510
  2. INVANZ [Suspect]
     Active Substance: ERTAPENEM SODIUM
     Indication: Pyrexia
  3. INDOMETHACIN [Concomitant]
     Active Substance: INDOMETHACIN
     Indication: Pyrexia
     Dosage: 50 MILLIGRAM, QD
     Route: 054
     Dates: start: 20230510, end: 20230510
  4. METOCLOPRAMIDE [Concomitant]
     Active Substance: METOCLOPRAMIDE
     Indication: Vomiting
     Dosage: 10 MILLIGRAM, QD
     Route: 030
     Dates: start: 20230510, end: 20230510
  5. OMEPRAZOLE [Concomitant]
     Active Substance: OMEPRAZOLE
     Indication: Prophylaxis
     Dosage: 60 MILLIGRAM, QD
     Route: 042
     Dates: start: 20230510, end: 20230510

REACTIONS (4)
  - Erythema multiforme [Recovering/Resolving]
  - Mouth ulceration [Recovering/Resolving]
  - Contraindicated product prescribed [Unknown]
  - Contraindicated product administered [Unknown]

NARRATIVE: CASE EVENT DATE: 20230510
